FAERS Safety Report 21372153 (Version 1)
Quarter: 2022Q3

REPORT INFORMATION
  Report Type: Spontaneous
  Country: None (occurrence: JP)
  Receive Date: 20220923
  Receipt Date: 20220923
  Transmission Date: 20221026
  Serious: Yes (Life-Threatening, Hospitalization)
  Sender: FDA-Public Use
  Company Number: JP-Nostrum Laboratories, Inc.-2133146

PATIENT
  Age: 77 Year
  Sex: Male

DRUGS (2)
  1. BUTALBITAL, ASPIRIN, AND CAFFEINE [Suspect]
     Active Substance: ASPIRIN\BUTALBITAL\CAFFEINE
     Indication: Prophylaxis
     Route: 048
  2. FEBUXOSTAT [Concomitant]
     Active Substance: FEBUXOSTAT
     Route: 048

REACTIONS (3)
  - Small intestinal perforation [Recovered/Resolved]
  - Explorative laparotomy [Recovered/Resolved]
  - Post procedural complication [Recovered/Resolved]
